FAERS Safety Report 6213734-3 (Version None)
Quarter: 2009Q2

REPORT INFORMATION
  Report Type: 
  Country: None (occurrence: None)
  Receive Date: 20090603
  Receipt Date: 20090407
  Transmission Date: 20091009
  Serious: Yes (Other)
  Sender: FDA-Public Use
  Company Number: US-JNJCH-2009009543

PATIENT
  Sex: Female

DRUGS (1)
  1. ZYRTEC [Suspect]
     Indication: DRUG USE FOR UNKNOWN INDICATION
     Dosage: TEXT:UNSPECIFIED
     Route: 048

REACTIONS (7)
  - BODY TEMPERATURE INCREASED [None]
  - BONE PAIN [None]
  - DRUG INEFFECTIVE [None]
  - EAR PAIN [None]
  - EYE PAIN [None]
  - HEADACHE [None]
  - MALAISE [None]
